FAERS Safety Report 9618759 (Version 2)
Quarter: 2013Q4

REPORT INFORMATION
  Report Type: Spontaneous
  Country: US (occurrence: US)
  Receive Date: 20131014
  Receipt Date: 20131014
  Transmission Date: 20140711
  Serious: Yes (Hospitalization, Other)
  Sender: FDA-Public Use
  Company Number: US-ROCHE-1270207

PATIENT
  Age: 79 Year
  Sex: Male

DRUGS (5)
  1. AVASTIN [Suspect]
     Indication: NON-SMALL CELL LUNG CANCER
     Route: 042
     Dates: start: 20130820
  2. AVASTIN [Suspect]
     Route: 042
     Dates: start: 20130905
  3. AVASTIN [Suspect]
     Route: 042
     Dates: start: 20130911, end: 20130924
  4. TAXOL [Concomitant]
     Indication: NON-SMALL CELL LUNG CANCER
     Route: 042
     Dates: start: 20130820
  5. CARBOPLATIN [Concomitant]
     Indication: NON-SMALL CELL LUNG CANCER
     Route: 042
     Dates: start: 20130820

REACTIONS (3)
  - Angioedema [Recovered/Resolved]
  - Swollen tongue [Recovered/Resolved]
  - Protein urine present [Unknown]
